FAERS Safety Report 24958388 (Version 1)
Quarter: 2025Q1

REPORT INFORMATION
  Report Type: Spontaneous
  Country: US (occurrence: US)
  Receive Date: 20250212
  Receipt Date: 20250212
  Transmission Date: 20250409
  Serious: Yes (Life-Threatening, Hospitalization, Other)
  Sender: RANBAXY
  Company Number: US-SUN PHARMACEUTICAL INDUSTRIES LTD-2025R1-493183

PATIENT
  Age: 35 Year
  Sex: Male

DRUGS (7)
  1. MAGNESIUM [Suspect]
     Active Substance: MAGNESIUM
     Indication: Tachycardia
     Route: 042
  2. DILTIAZEM [Suspect]
     Active Substance: DILTIAZEM
     Indication: Tachycardia
     Route: 065
  3. AMIODARONE [Suspect]
     Active Substance: AMIODARONE
     Indication: Tachycardia
     Route: 042
  4. LIDOCAINE [Suspect]
     Active Substance: LIDOCAINE
     Indication: Rhythm idioventricular
     Route: 065
  5. LIDOCAINE [Suspect]
     Active Substance: LIDOCAINE
     Indication: Tachycardia
  6. PROPRANOLOL [Suspect]
     Active Substance: PROPRANOLOL HYDROCHLORIDE
     Indication: Tachycardia
     Route: 048
  7. PROPRANOLOL [Suspect]
     Active Substance: PROPRANOLOL HYDROCHLORIDE
     Indication: Heart rate increased

REACTIONS (1)
  - Condition aggravated [Unknown]
